FAERS Safety Report 5056071-5 (Version None)
Quarter: 2006Q3

REPORT INFORMATION
  Report Type: 
  Country: None (occurrence: None)
  Receive Date: 20060717
  Receipt Date: 20060717
  Transmission Date: 20061208
  Serious: Yes (Other)
  Sender: FDA-Public Use
  Company Number: None

PATIENT
  Age: 16 Year
  Sex: Male
  Weight: 77.1115 kg

DRUGS (2)
  1. SELSUN BLUE SHAMPOO [Suspect]
     Indication: DANDRUFF
     Dates: start: 20040601, end: 20060714
  2. SELSUN BLUE  ( PYRITHIONE ZINC) [Suspect]
     Indication: DANDRUFF
     Dates: start: 20040601, end: 20060714

REACTIONS (9)
  - ASTHMA [None]
  - BREATH ODOUR [None]
  - CIRCUMSTANCE OR INFORMATION CAPABLE OF LEADING TO MEDICATION ERROR [None]
  - CONDITION AGGRAVATED [None]
  - DEPRESSION [None]
  - FATIGUE [None]
  - HYPERHIDROSIS [None]
  - SKIN DISCOLOURATION [None]
  - SKIN ODOUR ABNORMAL [None]
